FAERS Safety Report 12233976 (Version 1)
Quarter: 2016Q2

REPORT INFORMATION
  Report Type: Spontaneous
  Country: US (occurrence: None)
  Receive Date: 20160401
  Receipt Date: 20160401
  Transmission Date: 20160815
  Serious: No
  Sender: FDA-Public Use
  Company Number: None

PATIENT
  Age: 64 Year
  Sex: Female

DRUGS (9)
  1. FLAX/FISH OIL [Concomitant]
  2. FOLIC ACID. [Concomitant]
     Active Substance: FOLIC ACID
  3. NEXIUM [Concomitant]
     Active Substance: ESOMEPRAZOLE MAGNESIUM
  4. PROBIOTIC [Concomitant]
     Active Substance: PROBIOTICS NOS
  5. VITAMIN D [Concomitant]
     Active Substance: CHOLECALCIFEROL
  6. NORVASC [Concomitant]
     Active Substance: AMLODIPINE BESYLATE
  7. ORENCIA [Suspect]
     Active Substance: ABATACEPT
     Indication: RHEUMATOID ARTHRITIS
     Route: 058
     Dates: start: 20141227
  8. METHOTREXATE [Concomitant]
     Active Substance: METHOTREXATE
  9. DOCUSATE [Concomitant]
     Active Substance: DOCUSATE

REACTIONS (1)
  - Condition aggravated [None]

NARRATIVE: CASE EVENT DATE: 201602
